FAERS Safety Report 12960721 (Version 1)
Quarter: 2016Q4

REPORT INFORMATION
  Report Type: Spontaneous
  Country: US (occurrence: US)
  Receive Date: 20161121
  Receipt Date: 20161121
  Transmission Date: 20170207
  Serious: No
  Sender: FDA-Public Use
  Company Number: US-GILEAD-2016-0243607

PATIENT
  Age: 93 Year
  Sex: Female

DRUGS (2)
  1. RANEXA [Suspect]
     Active Substance: RANOLAZINE
     Indication: PRODUCT USED FOR UNKNOWN INDICATION
     Dosage: UNK MG, UNK
     Route: 065
  2. WARFARIN [Concomitant]
     Active Substance: WARFARIN

REACTIONS (2)
  - Nausea [Not Recovered/Not Resolved]
  - International normalised ratio increased [Not Recovered/Not Resolved]
